FAERS Safety Report 5852407-3 (Version None)
Quarter: 2008Q3

REPORT INFORMATION
  Report Type: 
  Country: None (occurrence: None)
  Receive Date: 20080820
  Receipt Date: 20080820
  Transmission Date: 20090109
  Serious: Yes (Life-Threatening, Disabling, Other)
  Sender: FDA-Public Use
  Company Number: None

PATIENT
  Age: 49 Year
  Sex: Female
  Weight: 72.5755 kg

DRUGS (1)
  1. QUINAPRIL [Suspect]
     Indication: PROTEINURIA
     Dosage: 5MG ONE PILL PER DAY PO
     Route: 048
     Dates: start: 20070301, end: 20080710

REACTIONS (6)
  - ALOPECIA [None]
  - DYSGEUSIA [None]
  - HYPERSOMNIA [None]
  - JOINT CREPITATION [None]
  - LETHARGY [None]
  - PHARMACEUTICAL PRODUCT COMPLAINT [None]
